FAERS Safety Report 10486983 (Version 1)
Quarter: 2014Q4

REPORT INFORMATION
  Report Type: Spontaneous
  Country: US (occurrence: US)
  Receive Date: 20141001
  Receipt Date: 20141001
  Transmission Date: 20150528
  Serious: No
  Sender: FDA-Public Use
  Company Number: US-PFIZER INC-2014269395

PATIENT
  Sex: Male

DRUGS (3)
  1. FLUOXETINE HCL [Interacting]
     Active Substance: FLUOXETINE HYDROCHLORIDE
     Dosage: UNK
  2. BUPROPION [Interacting]
     Active Substance: BUPROPION
     Dosage: UNK
  3. CHANTIX [Suspect]
     Active Substance: VARENICLINE TARTRATE
     Dosage: UNK

REACTIONS (3)
  - Heart rate abnormal [Unknown]
  - Drug interaction [Unknown]
  - Nervousness [Unknown]

NARRATIVE: CASE EVENT DATE: 201409
